FAERS Safety Report 14056973 (Version 1)
Quarter: 2017Q4

REPORT INFORMATION
  Report Type: Spontaneous
  Country: US (occurrence: US)
  Receive Date: 20171006
  Receipt Date: 20171006
  Transmission Date: 20180321
  Serious: No
  Sender: FDA-Public Use
  Company Number: US-PRINSTON PHARMACEUTICAL INC.-2017PRN00327

PATIENT
  Age: 60 Year
  Sex: Female
  Weight: 73.47 kg

DRUGS (5)
  1. VALSARTAN. [Suspect]
     Active Substance: VALSARTAN
     Dosage: 160 MG, 1X/DAY
     Route: 048
     Dates: start: 201701, end: 2017
  2. VALSARTAN (UNKNOWN MANUFACTURER) [Suspect]
     Active Substance: VALSARTAN
     Indication: HYPERTENSION
     Dosage: 80 MG, 1X/DAY
     Route: 048
     Dates: start: 201611
  3. CLONIDINE. [Concomitant]
     Active Substance: CLONIDINE
  4. VALSARTAN. [Suspect]
     Active Substance: VALSARTAN
     Indication: HYPERTENSION
     Dosage: 320 MG, 1X/DAY IN THE MORNING
     Route: 048
     Dates: start: 2017
  5. VALSARTAN. [Suspect]
     Active Substance: VALSARTAN
     Indication: HYPERTENSION
     Dosage: 80 MG, 1X/DAY
     Route: 048
     Dates: start: 201611, end: 201701

REACTIONS (11)
  - Gastrointestinal disorder [Recovering/Resolving]
  - Malaise [Recovered/Resolved]
  - Drug ineffective [Not Recovered/Not Resolved]
  - Vomiting [Recovering/Resolving]
  - Dizziness [Unknown]
  - Gastrointestinal sounds abnormal [Recovering/Resolving]
  - Feeling abnormal [Recovering/Resolving]
  - Loss of personal independence in daily activities [Recovering/Resolving]
  - Vasodilatation [Unknown]
  - Weight decreased [Not Recovered/Not Resolved]
  - Abdominal discomfort [Recovering/Resolving]

NARRATIVE: CASE EVENT DATE: 201611
